FAERS Safety Report 8586056-3 (Version None)
Quarter: 2012Q3

REPORT INFORMATION
  Report Type: 
  Country: None (occurrence: None)
  Receive Date: 20120810
  Receipt Date: 20120803
  Transmission Date: 20120928
  Serious: Yes (Other)
  Sender: FDA-Public Use
  Company Number: NL-PFIZER INC-2012125750

PATIENT
  Age: 48 Year
  Sex: Male
  Weight: 95 kg

DRUGS (5)
  1. SEROQUEL [Concomitant]
     Indication: ANXIETY
     Dosage: 5 MG, 1X/DAY
     Dates: start: 20110801, end: 20120701
  2. ESCITALOPRAM [Concomitant]
     Indication: DEPRESSION
  3. LYRICA [Suspect]
     Indication: NEURALGIA
     Dosage: 75 MG, 2X/DAY
     Route: 048
     Dates: start: 20111209, end: 20120301
  4. OXAZEPAM [Concomitant]
     Dosage: 10 MG, UNK
     Route: 048
     Dates: start: 20080101
  5. ESCITALOPRAM [Concomitant]
     Indication: ANXIETY
     Dosage: 20 MG, 1X/DAY
     Dates: start: 20090101

REACTIONS (2)
  - AGGRESSION [None]
  - ASOCIAL BEHAVIOUR [None]
